FAERS Safety Report 14880398 (Version 1)
Quarter: 2018Q2

REPORT INFORMATION
  Report Type: Spontaneous
  Country: US (occurrence: US)
  Receive Date: 20180425
  Receipt Date: 20180425
  Transmission Date: 20180711
  Serious: Yes (Disabling)
  Sender: FDA-Public Use
  Company Number: None

PATIENT
  Age: 55 Year
  Sex: Female
  Weight: 76.5 kg

DRUGS (11)
  1. MELOXICAM. [Concomitant]
     Active Substance: MELOXICAM
  2. COENZYME Q10 [Concomitant]
     Active Substance: UBIDECARENONE
  3. MAGNESIUM [Concomitant]
     Active Substance: MAGNESIUM
  4. HYDROCHLOROTHIAZIDE. [Concomitant]
     Active Substance: HYDROCHLOROTHIAZIDE
  5. GABEPENTIN [Concomitant]
  6. CALCIUM [Concomitant]
     Active Substance: CALCIUM
  7. SOY ISOFLAVIN [Concomitant]
  8. PROLIA [Suspect]
     Active Substance: DENOSUMAB
     Indication: OSTEOPOROSIS
     Dosage: ?          QUANTITY:1 INJECTION(S);OTHER FREQUENCY:EVERY 6 MONTHS;?
     Route: 030
     Dates: start: 20170828
  9. METFORMIN [Concomitant]
     Active Substance: METFORMIN HYDROCHLORIDE
  10. LEFLUNOMIDE. [Concomitant]
     Active Substance: LEFLUNOMIDE
  11. FISH OIL [Concomitant]
     Active Substance: FISH OIL

REACTIONS (3)
  - Nausea [None]
  - Pain in extremity [None]
  - Intervertebral disc operation [None]

NARRATIVE: CASE EVENT DATE: 20180320
